FAERS Safety Report 6826523-3 (Version None)
Quarter: 2010Q3

REPORT INFORMATION
  Report Type: 
  Country: None (occurrence: None)
  Receive Date: 20100709
  Receipt Date: 20100624
  Transmission Date: 20110219
  Serious: Yes (Other)
  Sender: FDA-Public Use
  Company Number: PHHY2010MX41905

PATIENT
  Age: 79 Year
  Sex: Female

DRUGS (1)
  1. ACLASTA [Suspect]
     Indication: OSTEOPOROSIS
     Dosage: 1 AMPOULE (5 MG/100) PER YEAR
     Route: 042
     Dates: start: 20090701

REACTIONS (3)
  - MENTAL DISORDER [None]
  - PARKINSON'S DISEASE [None]
  - TREMOR [None]
